FAERS Safety Report 9144452 (Version 4)
Quarter: 2014Q1

REPORT INFORMATION
  Report Type: Report from Study
  Country: US (occurrence: US)
  Receive Date: 20130306
  Receipt Date: 20140219
  Transmission Date: 20141002
  Serious: Yes (Life-Threatening, Hospitalization, Other)
  Sender: FDA-Public Use
  Company Number: US-ROCHE-GNE301814

PATIENT
  Age: 58 Year
  Sex: Female
  Weight: 96.9 kg

DRUGS (34)
  1. XOLAIR [Suspect]
     Indication: ASTHMA
     Route: 058
     Dates: start: 20100413
  2. XOLAIR [Suspect]
     Route: 065
     Dates: start: 20100511
  3. FLONASE [Concomitant]
     Indication: HYPERSENSITIVITY
     Route: 065
     Dates: start: 20090227
  4. FLONASE [Concomitant]
     Route: 065
     Dates: start: 2008
  5. PREDNISONE [Concomitant]
     Indication: ASTHMA
     Route: 065
     Dates: start: 20090227
  6. PREDNISONE [Concomitant]
     Route: 048
     Dates: start: 200801
  7. PULMICORT [Concomitant]
     Indication: ASTHMA
     Route: 065
     Dates: start: 20100127
  8. SYMBICORT [Concomitant]
     Indication: PRODUCT USED FOR UNKNOWN INDICATION
  9. VENTOLIN [Concomitant]
  10. XYZAL [Concomitant]
     Indication: HYPERSENSITIVITY
     Route: 048
     Dates: start: 2009
  11. ZYFLO [Concomitant]
     Indication: ASTHMA
     Route: 065
     Dates: start: 20090227
  12. ZYFLO [Concomitant]
     Route: 048
     Dates: start: 200801
  13. PATANASE [Concomitant]
  14. COZAAR [Concomitant]
     Indication: HYPERTENSION
     Route: 048
     Dates: start: 1994
  15. HYDROCHLOROTHIAZIDE [Concomitant]
     Indication: HYPERTENSION
     Route: 048
     Dates: start: 1994
  16. MESTINON [Concomitant]
     Indication: MYASTHENIA GRAVIS
     Route: 048
     Dates: start: 200908
  17. PROTONIX (UNITED STATES) [Concomitant]
     Indication: GASTROOESOPHAGEAL REFLUX DISEASE
     Route: 048
  18. MENEST [Concomitant]
     Indication: HORMONE REPLACEMENT THERAPY
     Route: 048
     Dates: start: 2003
  19. PAXIL [Concomitant]
     Indication: DEPRESSION
     Route: 048
     Dates: start: 2008
  20. OMEGA 3 [Concomitant]
  21. ALVESCO [Concomitant]
     Indication: ASTHMA
     Route: 065
     Dates: start: 20100127
  22. ALVESCO [Concomitant]
     Route: 065
     Dates: start: 2010
  23. BROVANA [Concomitant]
     Indication: ASTHMA
     Route: 065
     Dates: start: 20100127
  24. ALLEGRA [Concomitant]
     Indication: HYPERSENSITIVITY
     Route: 065
     Dates: start: 20090227
  25. PERFOROMIST [Concomitant]
     Indication: ASTHMA
     Route: 065
     Dates: start: 201001
  26. FLOVENT [Concomitant]
     Indication: ASTHMA
     Route: 065
     Dates: start: 2010
  27. ASPIRIN [Concomitant]
     Indication: CORONARY ARTERY DISEASE
     Route: 048
     Dates: start: 19940419
  28. NORVASC [Concomitant]
     Indication: ANGINA PECTORIS
     Route: 048
     Dates: start: 199404
  29. NORVASC [Concomitant]
     Indication: HYPERTENSION
  30. VITAMIN B12 [Concomitant]
     Indication: PRODUCT USED FOR UNKNOWN INDICATION
  31. DEPAKOTE [Concomitant]
     Indication: PRODUCT USED FOR UNKNOWN INDICATION
     Route: 065
  32. ADVAIR DISKUS [Concomitant]
     Indication: PRODUCT USED FOR UNKNOWN INDICATION
  33. LIPITOR [Concomitant]
     Indication: BLOOD CHOLESTEROL
     Route: 048
     Dates: start: 20110406, end: 20110507
  34. DEPAKOTE [Concomitant]
     Indication: MIGRAINE
     Route: 065
     Dates: start: 201104

REACTIONS (9)
  - Blindness [Recovered/Resolved]
  - Dyspnoea [Unknown]
  - Urticaria [Unknown]
  - Blood pressure decreased [Unknown]
  - Throat tightness [Unknown]
  - Headache [Unknown]
  - Pneumonia [Unknown]
  - Blood pressure increased [Unknown]
  - Rhinitis allergic [Unknown]
